FAERS Safety Report 9139226 (Version 1)
Quarter: 2013Q1

REPORT INFORMATION
  Report Type: Report from Study
  Country: US (occurrence: US)
  Receive Date: 20130305
  Receipt Date: 20130305
  Transmission Date: 20140127
  Serious: No
  Sender: FDA-Public Use
  Company Number: US-VERTEX PHARMACEUTICALS INC.-2013-000263

PATIENT
  Age: 47 Year
  Sex: Female

DRUGS (1)
  1. INCIVEK [Suspect]
     Indication: HEPATITIS C
     Dosage: DOSAGE FORM: TABLET
     Route: 048
     Dates: start: 20120930

REACTIONS (6)
  - Mood altered [Unknown]
  - Dry mouth [Unknown]
  - Gingival pain [Unknown]
  - Pruritus [Unknown]
  - Dysgeusia [Unknown]
  - Anal pruritus [Unknown]
